FAERS Safety Report 6027983-0 (Version None)
Quarter: 2008Q4

REPORT INFORMATION
  Report Type: 
  Country: None (occurrence: None)
  Receive Date: 20081230
  Receipt Date: 20081218
  Transmission Date: 20090506
  Serious: Yes (Hospitalization)
  Sender: FDA-Public Use
  Company Number: DSA_32918_2008

PATIENT
  Age: 47 Year
  Sex: Male

DRUGS (4)
  1. TAVOR /00273201/ (TAVOR) (NOT SPECIFIED) [Suspect]
     Indication: DEPRESSION
     Dosage: (TAPERING ORAL), (8 MG QD ORAL)
     Route: 048
     Dates: end: 20081201
  2. TAVOR /00273201/ (TAVOR) (NOT SPECIFIED) [Suspect]
     Indication: DEPRESSION
     Dosage: (TAPERING ORAL), (8 MG QD ORAL)
     Route: 048
     Dates: start: 20081201
  3. TREVILOR (TREVILOR) (NOT SPECIFIED) [Suspect]
     Indication: DEPRESSION
     Dosage: (HIGHEST DOSE ORAL)
     Route: 048
  4. UNSPECIFIED MEDICATION [Concomitant]

REACTIONS (1)
  - DRUG INEFFECTIVE [None]
